FAERS Safety Report 14537040 (Version 4)
Quarter: 2019Q1

REPORT INFORMATION
  Report Type: Report from Study
  Country: DE (occurrence: DE)
  Receive Date: 20180215
  Receipt Date: 20190218
  Transmission Date: 20190417
  Serious: Yes (Hospitalization, Other)
  Sender: FDA-Public Use
  Company Number: DE-ALLERGAN-1807601US

PATIENT
  Sex: Female

DRUGS (20)
  1. HEPARIN [Concomitant]
     Active Substance: HEPARIN SODIUM
     Indication: PROPHYLAXIS
     Dosage: 20 MG, UNK
     Route: 065
     Dates: start: 20160705, end: 20160707
  2. PANTOZOL [Concomitant]
     Active Substance: PANTOPRAZOLE SODIUM
     Indication: PROPHYLAXIS
     Dosage: 20 MG, UNK
     Route: 065
  3. LAMOTRIGINE. [Concomitant]
     Active Substance: LAMOTRIGINE
     Indication: HEADACHE
     Dosage: 25 MG, UNK
     Route: 065
     Dates: start: 20180709, end: 20180920
  4. KALINOR [Concomitant]
     Indication: PROPHYLAXIS
     Dosage: 24 MMOL, UNK
     Route: 065
     Dates: start: 20160705, end: 20160707
  5. PANTOPRAZOLE [Concomitant]
     Active Substance: PANTOPRAZOLE
     Indication: PROPHYLAXIS
     Dosage: 20 MG, UNK
     Route: 065
     Dates: start: 20160705, end: 20160707
  6. SUMATRIPTAN. [Concomitant]
     Active Substance: SUMATRIPTAN
     Indication: HEADACHE
     Dosage: UNK UNK, PRN
     Route: 065
     Dates: start: 20160121
  7. GILENYA [Suspect]
     Active Substance: FINGOLIMOD HYDROCHLORIDE
     Indication: MULTIPLE SCLEROSIS
     Dosage: 0.5 MG, QD
     Route: 048
     Dates: start: 20151016
  8. TOPIRAMATE. [Concomitant]
     Active Substance: TOPIRAMATE
     Indication: HEADACHE
     Dosage: 12.5 OT, PRN
     Route: 065
     Dates: start: 20160308, end: 20180709
  9. ZOLMITRIPTAN. [Concomitant]
     Active Substance: ZOLMITRIPTAN
     Indication: HEADACHE
     Dosage: 5 MG, UNK
     Route: 065
     Dates: start: 20180709
  10. MELATONIN [Concomitant]
     Active Substance: MELATONIN
     Indication: MIDDLE INSOMNIA
  11. CIRCADIN [Concomitant]
     Active Substance: MELATONIN
     Indication: SLEEP DISORDER
     Dosage: 2 MG, UNK
     Route: 065
     Dates: start: 20160920
  12. COLECALCIFEROL [Concomitant]
     Active Substance: CHOLECALCIFEROL
     Indication: PROPHYLAXIS
     Dosage: 4000 UNK UNK
     Route: 065
  13. CITALOPRAM HYDROBROMIDE UNK [Suspect]
     Active Substance: CITALOPRAM HYDROBROMIDE
     Indication: PANIC DISORDER
     Dosage: 20 MG, UNK
     Route: 065
     Dates: start: 20151217, end: 20151230
  14. IMIGRAN [Concomitant]
     Active Substance: SUMATRIPTAN SUCCINATE
     Indication: HEADACHE
     Dosage: UNK, PRN
     Route: 045
     Dates: start: 20160121
  15. MELATONIN [Concomitant]
     Active Substance: MELATONIN
     Indication: INITIAL INSOMNIA
     Dosage: 2 MG, UNK
     Route: 065
     Dates: start: 20160920
  16. DEKRISTOL [Concomitant]
     Active Substance: CHOLECALCIFEROL
     Indication: PROPHYLAXIS
     Dosage: 4000 OT, UNK
     Route: 065
     Dates: start: 20151217
  17. ZOLPIDEM [Concomitant]
     Active Substance: ZOLPIDEM\ZOLPIDEM TARTRATE
     Indication: PROPHYLAXIS
     Dosage: 10 MG, UNK
     Route: 065
     Dates: start: 20160705, end: 20160707
  18. IBUPROFEN. [Concomitant]
     Active Substance: IBUPROFEN
     Indication: HEADACHE
     Dosage: 600 MG, UNK
     Route: 065
  19. METHYLPREDNISOLONE. [Concomitant]
     Active Substance: METHYLPREDNISOLONE
     Indication: BLOOD BRAIN BARRIER DEFECT
     Dosage: 500 MG, UNK
     Route: 065
     Dates: start: 20160705, end: 20160707
  20. POTASSIUM CHLORIDE. [Concomitant]
     Active Substance: POTASSIUM CHLORIDE
     Indication: PROPHYLAXIS
     Dosage: 24 MMOL, UNK
     Route: 065
     Dates: start: 20160705, end: 20160707

REACTIONS (7)
  - Drug intolerance [Recovered/Resolved]
  - Nausea [Recovered/Resolved]
  - Dizziness [Recovered/Resolved]
  - Blood brain barrier defect [Recovered/Resolved]
  - Cardiovascular disorder [Recovered/Resolved]
  - Hypertension [Recovered/Resolved]
  - Gamma-glutamyltransferase increased [Not Recovered/Not Resolved]

NARRATIVE: CASE EVENT DATE: 20151230
